FAERS Safety Report 14748246 (Version 1)
Quarter: 2018Q2

REPORT INFORMATION
  Report Type: Not Available
  Country: SE (occurrence: HR)
  Receive Date: 20180411
  Receipt Date: 20180411
  Transmission Date: 20180711
  Serious: Yes (Other)
  Sender: FDA-Public Use
  Company Number: SE-ANIPHARMA-2018-HR-000003

PATIENT
  Age: 68 Year
  Sex: Female

DRUGS (4)
  1. ANASTROZOLE. [Suspect]
     Active Substance: ANASTROZOLE
     Indication: BREAST CANCER
     Route: 048
  2. LETROZOLE. [Suspect]
     Active Substance: LETROZOLE
  3. IBANDRONATE SODIUM. [Suspect]
     Active Substance: IBANDRONATE SODIUM
  4. TAMOXIFEN [Suspect]
     Active Substance: TAMOXIFEN
     Route: 048

REACTIONS (7)
  - Nausea [Unknown]
  - Myalgia [Unknown]
  - Metastases to bone [Unknown]
  - Hot flush [Unknown]
  - Arthralgia [Unknown]
  - Drug ineffective [Unknown]
  - Bone pain [Unknown]
